FAERS Safety Report 10163028 (Version 2)
Quarter: 2014Q2

REPORT INFORMATION
  Report Type: Spontaneous
  Country: US (occurrence: US)
  Receive Date: 20140509
  Receipt Date: 20140513
  Transmission Date: 20141212
  Serious: No
  Sender: FDA-Public Use
  Company Number: US-PFIZER INC-2014116566

PATIENT
  Age: 61 Year
  Sex: Male
  Weight: 98 kg

DRUGS (4)
  1. AMLODIPINE [Suspect]
     Indication: HYPERTENSION
     Dosage: 5 MG, DAILY
     Dates: start: 20140107, end: 20140114
  2. LISINOPRIL [Suspect]
     Indication: HYPERTENSION
     Dosage: UNK
  3. MELOXICAM [Concomitant]
     Indication: ARTHRITIS
     Dosage: 15 MG, DAILY
  4. MELOXICAM [Concomitant]
     Dosage: 10 MG, DAILY

REACTIONS (4)
  - Oedema peripheral [Not Recovered/Not Resolved]
  - Skin disorder [Not Recovered/Not Resolved]
  - Flushing [Not Recovered/Not Resolved]
  - Arthralgia [Not Recovered/Not Resolved]
